FAERS Safety Report 4418025-9 (Version None)
Quarter: 2004Q3

REPORT INFORMATION
  Report Type: 
  Country: None (occurrence: None)
  Receive Date: 20040803
  Receipt Date: 20040726
  Transmission Date: 20050211
  Serious: Yes (Hospitalization)
  Sender: FDA-Public Use
  Company Number: MK200407-0221-1

PATIENT
  Age: 51 Year
  Sex: Female

DRUGS (1)
  1. HEXABRIX [Suspect]
     Indication: SPINAL MYELOGRAM
     Dosage: ONCE, INTRATHECAL
     Route: 037
     Dates: start: 20040504, end: 20040504

REACTIONS (8)
  - BRAIN OEDEMA [None]
  - BRAIN SCAN ABNORMAL [None]
  - CONFUSIONAL STATE [None]
  - CONVULSION [None]
  - EPILEPSY [None]
  - MEDICATION ERROR [None]
  - PARAESTHESIA [None]
  - SOMNOLENCE [None]
